FAERS Safety Report 7706447-X (Version None)
Quarter: 2011Q3

REPORT INFORMATION
  Report Type: 
  Country: None (occurrence: None)
  Receive Date: 20110818
  Receipt Date: 20110808
  Transmission Date: 20111222
  Serious: Yes (Other)
  Sender: FDA-Public Use
  Company Number: FK201101601

PATIENT
  Age: 37 Year
  Sex: Female
  Weight: 92 kg

DRUGS (3)
  1. LEVOBUPIVICAINE 0.1% (LEVOBUPIVACAINE [Concomitant]
  2. ONDANSETRON [Suspect]
     Indication: VOMITING
     Dosage: 4 MG, INTRAVENOUS (NOT OTHERWISE SPECIFIED)
     Route: 042
     Dates: start: 20110725, end: 20110725
  3. FENTANYL [Concomitant]

REACTIONS (5)
  - DYSTONIA [None]
  - RESTLESS LEGS SYNDROME [None]
  - MUSCLE TWITCHING [None]
  - CHILLS [None]
  - MATERNAL EXPOSURE DURING PREGNANCY [None]
